FAERS Safety Report 4653321-1 (Version None)
Quarter: 2005Q2

REPORT INFORMATION
  Report Type: 
  Country: None (occurrence: None)
  Receive Date: 20050505
  Receipt Date: 20041231
  Transmission Date: 20051028
  Serious: Yes (Hospitalization)
  Sender: FDA-Public Use
  Company Number: 200419910US

PATIENT
  Sex: Male

DRUGS (3)
  1. KETEK [Suspect]
     Indication: INFLUENZA
     Dosage: DOSE: UNK
  2. KETEK [Suspect]
     Indication: PNEUMONIA
     Dosage: DOSE: UNK
  3. LEVAQUIN [Concomitant]
     Dosage: DOSE: UNK

REACTIONS (9)
  - CARDIAC FAILURE CONGESTIVE [None]
  - CARDIOMEGALY [None]
  - CARDIOMYOPATHY ACUTE [None]
  - CHEST PAIN [None]
  - DYSPNOEA [None]
  - GENERAL PHYSICAL HEALTH DETERIORATION [None]
  - NAUSEA [None]
  - RASH [None]
  - WEIGHT INCREASED [None]
